FAERS Safety Report 12586739 (Version 1)
Quarter: 2016Q3

REPORT INFORMATION
  Report Type: Spontaneous
  Country: US (occurrence: None)
  Receive Date: 20160722
  Receipt Date: 20160722
  Transmission Date: 20161109
  Serious: Yes (Hospitalization)
  Sender: FDA-Public Use
  Company Number: None

PATIENT
  Age: 12 Year
  Sex: Female
  Weight: 68.49 kg

DRUGS (8)
  1. CLOZAPINE, 100MG TEVA [Suspect]
     Active Substance: CLOZAPINE
     Indication: BIPOLAR DISORDER
     Route: 048
     Dates: start: 20160503, end: 20160606
  2. VITAMIN D2 [Concomitant]
     Active Substance: ERGOCALCIFEROL
  3. LEVOTHYROXINE. [Concomitant]
     Active Substance: LEVOTHYROXINE
  4. CLOZAPINE, 25MG TEVA [Suspect]
     Active Substance: CLOZAPINE
     Indication: BIPOLAR DISORDER
     Route: 048
     Dates: start: 20160412, end: 20160606
  5. MELATONIN [Concomitant]
     Active Substance: MELATONIN
  6. BENZTROPINE [Concomitant]
     Active Substance: BENZTROPINE
  7. GUANFACINE ER [Concomitant]
     Active Substance: GUANFACINE
  8. LITHIUM. [Concomitant]
     Active Substance: LITHIUM

REACTIONS (8)
  - Helicobacter test positive [None]
  - Unresponsive to stimuli [None]
  - Asthenia [None]
  - Pupillary reflex impaired [None]
  - Vomiting [None]
  - Gastrooesophageal reflux disease [None]
  - Pancreatitis acute [None]
  - Type 1 diabetes mellitus [None]

NARRATIVE: CASE EVENT DATE: 20160606
